FAERS Safety Report 4631386-0 (Version None)
Quarter: 2005Q2

REPORT INFORMATION
  Report Type: 
  Country: None (occurrence: None)
  Receive Date: 20050407
  Receipt Date: 20030331
  Transmission Date: 20051028
  Serious: No
  Sender: FDA-Public Use
  Company Number: 5110

PATIENT
  Age: 73 Year
  Sex: Female

DRUGS (2)
  1. MIDAZOLAM HCL [Suspect]
     Indication: ANALGESIC EFFECT
     Dosage: 7 MG TOTAL IV
     Route: 042
  2. KETAMINE HCL [Suspect]
     Indication: ANALGESIC EFFECT
     Dosage: 30 MG TOTAL IV
     Route: 042

REACTIONS (10)
  - ANAESTHETIC COMPLICATION VASCULAR [None]
  - BLOOD PRESSURE DECREASED [None]
  - BLOOD PRESSURE INCREASED [None]
  - COMA [None]
  - FEELING ABNORMAL [None]
  - HEART RATE DECREASED [None]
  - HEART RATE INCREASED [None]
  - NEUROGENIC SHOCK [None]
  - OPERATIVE HAEMORRHAGE [None]
  - RESPIRATORY ARREST [None]
